FAERS Safety Report 21839155 (Version 2)
Quarter: 2023Q1

REPORT INFORMATION
  Report Type: Spontaneous
  Country: PT (occurrence: PT)
  Receive Date: 20230109
  Receipt Date: 20230210
  Transmission Date: 20230417
  Serious: Yes (Other)
  Sender: FDA-Public Use
  Company Number: None

PATIENT
  Age: 56 Year
  Sex: Female
  Weight: 92 kg

DRUGS (12)
  1. TRULICITY [Suspect]
     Active Substance: DULAGLUTIDE
     Indication: Hyperglycaemia
     Dosage: 1.5 MG, WEEKLY (1/W)
     Route: 058
     Dates: start: 20221130, end: 20221214
  2. DAPAGLIFLOZIN [Concomitant]
     Active Substance: DAPAGLIFLOZIN
     Indication: Product used for unknown indication
     Dosage: UNK
     Route: 048
  3. SYMBICORT [Concomitant]
     Active Substance: BUDESONIDE\FORMOTEROL FUMARATE DIHYDRATE
     Indication: Product used for unknown indication
     Dosage: UNK
  4. DENSICAL D [Concomitant]
     Indication: Product used for unknown indication
     Dosage: UNK
     Route: 048
  5. MONTELUKAST SODIUM [Concomitant]
     Active Substance: MONTELUKAST SODIUM
     Indication: Product used for unknown indication
     Dosage: UNK
     Route: 048
  6. GLICLAZIDE [Concomitant]
     Active Substance: GLICLAZIDE
     Indication: Product used for unknown indication
     Dosage: UNK
     Route: 048
  7. LETTER [Concomitant]
     Indication: Product used for unknown indication
     Dosage: UNK
     Route: 048
  8. ATORVASTATIN CALCIUM [Concomitant]
     Active Substance: ATORVASTATIN CALCIUM
     Indication: Product used for unknown indication
     Dosage: UNK
     Route: 048
  9. VENEX [DIOSMIN] [Concomitant]
     Indication: Product used for unknown indication
     Dosage: UNK
     Route: 048
  10. MOLINAR [Concomitant]
     Indication: Product used for unknown indication
     Dosage: UNK
     Route: 048
  11. ATARAX [Concomitant]
     Active Substance: HYDROXYZINE HYDROCHLORIDE
     Indication: Product used for unknown indication
     Route: 048
  12. PERINDOPRIL + AMLODIPINA CICLUM [Concomitant]
     Indication: Product used for unknown indication

REACTIONS (5)
  - Tongue injury [Not Recovered/Not Resolved]
  - Plicated tongue [Not Recovered/Not Resolved]
  - Nausea [Recovered/Resolved]
  - Vomiting [Recovered/Resolved]
  - Diarrhoea [Recovered/Resolved]

NARRATIVE: CASE EVENT DATE: 20221130
